FAERS Safety Report 8103010-6 (Version None)
Quarter: 2012Q1

REPORT INFORMATION
  Report Type: 
  Country: None (occurrence: None)
  Receive Date: 20120201
  Receipt Date: 20120201
  Transmission Date: 20120608
  Serious: Yes (Other)
  Sender: FDA-Public Use
  Company Number: None

PATIENT
  Age: 70 Year
  Sex: Male
  Weight: 85.275 kg

DRUGS (1)
  1. AMLODIPINE BESYLATE AND BENAZEPRIL HCL [Suspect]
     Indication: HYPERTENSION
     Dosage: I TABLET
     Dates: start: 20110603, end: 20120117

REACTIONS (3)
  - HEADACHE [None]
  - PRODUCT SUBSTITUTION ISSUE [None]
  - PALPITATIONS [None]
